FAERS Safety Report 4303028-5 (Version None)
Quarter: 2004Q1

REPORT INFORMATION
  Report Type: 
  Country: None (occurrence: None)
  Receive Date: 20040223
  Receipt Date: 20040223
  Transmission Date: 20041129
  Serious: Yes (Life-Threatening)
  Sender: FDA-Public Use
  Company Number: None

PATIENT
  Age: 77 Year
  Sex: Male
  Weight: 81 kg

DRUGS (4)
  1. WARFARIN SODIUM [Suspect]
     Indication: ATRIAL FIBRILLATION
     Dosage: 7.5 MG DAILY ORAL
     Route: 048
     Dates: start: 20030807, end: 20030910
  2. HEPARIN [Suspect]
     Indication: ATRIAL FIBRILLATION
     Dosage: CONTINUOUS INFUS INTRAVENOUS
     Route: 042
     Dates: start: 20030902, end: 20030912
  3. LEVAQUIN [Concomitant]
  4. PREDNISONE [Concomitant]

REACTIONS (4)
  - HAEMATOCRIT DECREASED [None]
  - HAEMOGLOBIN DECREASED [None]
  - HAEMOPTYSIS [None]
  - PRODUCTIVE COUGH [None]
